FAERS Safety Report 15830594 (Version 1)
Quarter: 2019Q1

REPORT INFORMATION
  Report Type: Spontaneous
  Country: FR (occurrence: FR)
  Receive Date: 20190115
  Receipt Date: 20190115
  Transmission Date: 20190417
  Serious: Yes (Other)
  Sender: FDA-Public Use
  Company Number: FR-BAXTER-2019BAX000369

PATIENT
  Age: 84 Year
  Sex: Female

DRUGS (3)
  1. RITUXIMAB. [Suspect]
     Active Substance: RITUXIMAB
     Indication: NON-HODGKIN^S LYMPHOMA
     Dosage: UNK UNK, UNK
     Route: 065
  2. ENDOXAN 1000 MG, POUDRE POUR SOLUTIONINJECTABLE [Suspect]
     Active Substance: CYCLOPHOSPHAMIDE
     Indication: NON-HODGKIN^S LYMPHOMA
     Dosage: UNK UNK, UNK
     Route: 065
  3. FLUDARA [Suspect]
     Active Substance: FLUDARABINE PHOSPHATE
     Indication: NON-HODGKIN^S LYMPHOMA
     Dosage: UNK UNK, UNK
     Route: 065

REACTIONS (8)
  - Asthenia [Unknown]
  - Bacteraemia [Unknown]
  - Decreased appetite [Unknown]
  - Pyrexia [Unknown]
  - Pancytopenia [Unknown]
  - Brucellosis [Recovered/Resolved]
  - Hyperhidrosis [Unknown]
  - Haemophagocytic lymphohistiocytosis [Recovering/Resolving]
